FAERS Safety Report 19495470 (Version 2)
Quarter: 2021Q3

REPORT INFORMATION
  Report Type: Spontaneous
  Country: US (occurrence: US)
  Receive Date: 20210706
  Receipt Date: 20210802
  Transmission Date: 20211014
  Serious: No
  Sender: FDA-Public Use
  Company Number: US-GILEAD-2021-0538930

PATIENT
  Age: 62 Year
  Sex: Male

DRUGS (3)
  1. FLUOXETINE [Concomitant]
     Active Substance: FLUOXETINE HYDROCHLORIDE
  2. SOFOSBUVIR;VELPATASVIR [Suspect]
     Active Substance: SOFOSBUVIR\VELPATASVIR
     Indication: CHRONIC HEPATITIS C
     Dosage: 1 DOSAGE FORM, QD
     Route: 048
  3. FLUOXETINE DR REDDYS [Concomitant]

REACTIONS (7)
  - Diarrhoea [Unknown]
  - Fatigue [Unknown]
  - Pain in extremity [Unknown]
  - Myalgia [Unknown]
  - Product dose omission issue [Recovered/Resolved]
  - Amnesia [Unknown]
  - Memory impairment [Unknown]

NARRATIVE: CASE EVENT DATE: 20210608
